FAERS Safety Report 24351306 (Version 1)
Quarter: 2024Q3

REPORT INFORMATION
  Report Type: Report from Study
  Country: EG (occurrence: EG)
  Receive Date: 20240923
  Receipt Date: 20240923
  Transmission Date: 20241016
  Serious: No
  Sender: ROCHE
  Company Number: EG-ROCHE-2908404

PATIENT
  Age: 46 Year
  Sex: Female

DRUGS (7)
  1. TRASTUZUMAB [Suspect]
     Active Substance: TRASTUZUMAB
     Indication: HER2 positive breast cancer
     Dosage: PLANNED NUMBER OF CYCLES COMPLETED
     Route: 041
     Dates: start: 20180603, end: 20200415
  2. PACLITAXEL [Suspect]
     Active Substance: PACLITAXEL
     Indication: HER2 positive breast cancer
     Dosage: CYCLES PER REGIMEN 6
     Route: 042
     Dates: start: 20180603, end: 20181006
  3. CARBOPLATIN [Suspect]
     Active Substance: CARBOPLATIN
     Indication: HER2 positive breast cancer
     Dosage: 5 AUC PLANNED NUMBER OF CYCLES COMPLETED
     Route: 042
     Dates: start: 20180603, end: 20181006
  4. LETROZOLE [Suspect]
     Active Substance: LETROZOLE
     Indication: HER2 positive breast cancer
     Route: 048
     Dates: start: 20181106
  5. GOSERELIN [Suspect]
     Active Substance: GOSERELIN
     Indication: HER2 positive breast cancer
     Route: 058
     Dates: start: 20180530
  6. ZYRTEC (EGYPT) [Concomitant]
     Route: 048
     Dates: start: 20181231, end: 20190103
  7. ASPIRIN [Concomitant]
     Active Substance: ASPIRIN
     Route: 048
     Dates: start: 20181223

REACTIONS (1)
  - Breast pain [Recovered/Resolved]

NARRATIVE: CASE EVENT DATE: 20200623
